FAERS Safety Report 4941448-6 (Version None)
Quarter: 2006Q1

REPORT INFORMATION
  Report Type: 
  Country: None (occurrence: None)
  Receive Date: 20060308
  Receipt Date: 20060228
  Transmission Date: 20060701
  Serious: Yes (Disabling)
  Sender: FDA-Public Use
  Company Number: 2006002309

PATIENT
  Age: 53 Year
  Sex: Male
  Weight: 118 kg

DRUGS (7)
  1. LYRICA [Suspect]
     Indication: MIGRAINE
     Dosage: 300 MG (300 MG, 1 IN 1 D); ORAL
     Route: 048
  2. CELEBREX [Concomitant]
  3. NATRILIX (INDAPAMIDE) [Concomitant]
  4. AVAPRO HCT (HYDROCHLOROTHIAZIDE, IRBESARTAN) [Concomitant]
  5. COVERSYL (PERINDOPRIL) [Concomitant]
  6. ATENOLOL [Concomitant]
  7. DIAZEPAM [Concomitant]

REACTIONS (3)
  - DISEASE RECURRENCE [None]
  - DRUG INEFFECTIVE [None]
  - MIGRAINE [None]
